FAERS Safety Report 8555404 (Version 2)
Quarter: 2012Q4

REPORT INFORMATION
  Report Type: 
  Country: US (occurrence: US)
  Receive Date: 20120510
  Receipt Date: 20120907
  Transmission Date: 20130627
  Serious: Yes (Hospitalization, Other)
  Sender: FDA-Public Use
  Company Number: US-BAYER-2012-045457

PATIENT
  Age: 24 Year
  Sex: Female
  Weight: 48.98 kg

DRUGS (1)
  1. YAZ [Suspect]
     Dosage: UNK
     Dates: start: 200810

REACTIONS (7)
  - Gallbladder injury [None]
  - Cholecystitis chronic [None]
  - Biliary colic [None]
  - Pain [None]
  - Injury [None]
  - Fear [None]
  - Pain [None]
